FAERS Safety Report 25756131 (Version 1)
Quarter: 2025Q3

REPORT INFORMATION
  Report Type: Spontaneous
  Country: US (occurrence: None)
  Receive Date: 20250903
  Receipt Date: 20250903
  Transmission Date: 20251021
  Serious: Yes (Death)
  Sender: FDA-CTU
  Company Number: None

PATIENT
  Age: 63 Year
  Sex: Male

DRUGS (11)
  1. DOVATO [Suspect]
     Active Substance: DOLUTEGRAVIR SODIUM\LAMIVUDINE
     Indication: HIV infection
     Dosage: OTHER STRENGTH : 50/300 MG/MG;?OTHER QUANTITY : 50/300MGMG;?FREQUENCY : DAILY;?
     Route: 048
     Dates: start: 20250613
  2. VITAMINS [Concomitant]
     Active Substance: VITAMINS
  3. ASPIRIN [Concomitant]
     Active Substance: ASPIRIN
  4. VITAMIN D [Concomitant]
     Active Substance: VITAMIN D NOS
  5. LOSARTAN [Concomitant]
     Active Substance: LOSARTAN
  6. CLONAZEPAM [Concomitant]
     Active Substance: CLONAZEPAM
  7. REXULTI [Concomitant]
     Active Substance: BREXPIPRAZOLE
  8. ESZOPICLONE 3MG TABLETS [Concomitant]
  9. ZOLPIDEM [Concomitant]
     Active Substance: ZOLPIDEM TARTRATE
  10. LEVETIRACETAM [Concomitant]
     Active Substance: LEVETIRACETAM
  11. CHLORTHALIDONE [Concomitant]
     Active Substance: CHLORTHALIDONE

REACTIONS (1)
  - Death [None]
